FAERS Safety Report 15215615 (Version 10)
Quarter: 2020Q4

REPORT INFORMATION
  Report Type: Spontaneous
  Country: US (occurrence: US)
  Receive Date: 20180730
  Receipt Date: 20201119
  Transmission Date: 20210113
  Serious: Yes (Other)
  Sender: FDA-Public Use
  Company Number: US-PFIZER INC-2018304257

PATIENT
  Age: 66 Year
  Sex: Female
  Weight: 82 kg

DRUGS (4)
  1. IBRANCE [Suspect]
     Active Substance: PALBOCICLIB
     Dosage: 100 MG, UNK
     Route: 048
  2. IBRANCE [Suspect]
     Active Substance: PALBOCICLIB
     Indication: BREAST CANCER METASTATIC
     Dosage: 125 MG, CYCLIC (ONCE DAILY FOR 3 WEEKS AND THEN 1 WEEK OFF)
     Route: 048
     Dates: start: 20180604
  3. FASLODEX [Concomitant]
     Active Substance: FULVESTRANT
     Indication: BREAST CANCER METASTATIC
     Dosage: UNK (2 INJECTIONS IN THE REAR END ONCE A MONTH)
     Dates: start: 20180604
  4. IBRANCE [Suspect]
     Active Substance: PALBOCICLIB
     Dosage: 75 MG
     Route: 048

REACTIONS (10)
  - Confusional state [Unknown]
  - Blood count abnormal [Recovering/Resolving]
  - White blood cell count decreased [Recovering/Resolving]
  - Fall [Unknown]
  - Fatigue [Unknown]
  - Pain [Unknown]
  - Neutrophil count decreased [Unknown]
  - Lower limb fracture [Unknown]
  - Neoplasm progression [Unknown]
  - Arthralgia [Not Recovered/Not Resolved]

NARRATIVE: CASE EVENT DATE: 20180726
